FAERS Safety Report 8408732-5 (Version None)
Quarter: 2012Q2

REPORT INFORMATION
  Report Type: 
  Country: None (occurrence: None)
  Receive Date: 20120604
  Receipt Date: 20120603
  Transmission Date: 20120825
  Serious: Yes (Death)
  Sender: FDA-Public Use
  Company Number: IT-BAYER-2012-054807

PATIENT
  Age: 82 Year
  Sex: Male

DRUGS (7)
  1. LASIX [Concomitant]
     Dosage: DAILY DOSE 25 MG
     Route: 048
  2. ASPIRIN [Suspect]
     Dosage: 100 MG, QD
     Route: 048
     Dates: start: 20080601, end: 20110115
  3. MINITRAN [Concomitant]
     Dosage: DAILY DOSE 10 MG/24HR
     Route: 062
  4. LEVOFLOXACIN [Concomitant]
     Indication: CHRONIC OBSTRUCTIVE PULMONARY DISEASE
     Dosage: DAILY DOSE 500 MG
     Route: 048
     Dates: start: 20110113, end: 20110115
  5. SINTROM [Suspect]
     Indication: ATRIAL FIBRILLATION
     Dosage: 4 MG, PRN
     Route: 048
     Dates: start: 20080101, end: 20110115
  6. CORDARONE [Concomitant]
     Dosage: DAILY DOSE 200 MG
     Route: 048
  7. ALTIAZEM [Concomitant]
     Dosage: DAILY DOSE 1 DF
     Route: 048

REACTIONS (2)
  - CEREBELLAR HAEMORRHAGE [None]
  - HYPOCOAGULABLE STATE [None]
